FAERS Safety Report 21248148 (Version 3)
Quarter: 2022Q3

REPORT INFORMATION
  Report Type: Spontaneous
  Country: US (occurrence: US)
  Receive Date: 20220824
  Receipt Date: 20220913
  Transmission Date: 20221027
  Serious: Yes (Other)
  Sender: FDA-Public Use
  Company Number: US-Waylis Therapeutics LLC-ATNAHS20220807501

PATIENT
  Sex: Female

DRUGS (3)
  1. VALIUM [Suspect]
     Active Substance: DIAZEPAM
     Indication: Tremor
     Dosage: AMOUNT OF 240 ^^DAW ONLY^^
     Route: 050
  2. VALIUM [Suspect]
     Active Substance: DIAZEPAM
     Indication: Muscle spasms
  3. VALIUM [Suspect]
     Active Substance: DIAZEPAM
     Indication: Pain

REACTIONS (3)
  - Anaphylactic shock [Unknown]
  - Therapeutic response decreased [Unknown]
  - Intentional dose omission [Unknown]
